FAERS Safety Report 7953967-9 (Version None)
Quarter: 2011Q4

REPORT INFORMATION
  Report Type: 
  Country: None (occurrence: None)
  Receive Date: 20111202
  Receipt Date: 20111130
  Transmission Date: 20120403
  Serious: Yes (Hospitalization, Other)
  Sender: FDA-Public Use
  Company Number: JP-PFIZER INC-2011279987

PATIENT
  Age: 86 Year
  Sex: Female
  Weight: 48.5 kg

DRUGS (22)
  1. AMARYL [Concomitant]
     Indication: DIABETES MELLITUS
     Dosage: 1 MG, 3X/DAY
     Route: 048
  2. DEZOLAM [Concomitant]
     Indication: INSOMNIA
     Dosage: 2 MG, 1X/DAY
     Route: 048
  3. TETRAMIDE [Concomitant]
     Indication: INSOMNIA
     Dosage: 10 MG, 2X/DAY
     Route: 048
  4. MS HOT PACK [Concomitant]
     Indication: LUMBAR SPINAL STENOSIS
     Dosage: UNK
     Route: 061
  5. ACETAMINOPHEN [Concomitant]
     Indication: HEADACHE
  6. TRAZODONE HYDROCHLORIDE [Concomitant]
     Indication: INSOMNIA
     Dosage: 50 MG, 1X/DAY
     Route: 048
  7. SEDIEL [Concomitant]
     Indication: INSOMNIA
     Dosage: 10 MG, 2X/DAY
     Route: 048
  8. NITRAZEPAM [Concomitant]
     Indication: INSOMNIA
     Dosage: 5 MG, 1X/DAY
     Route: 048
  9. ALOSENN [Concomitant]
     Indication: CONSTIPATION
     Dosage: 1 G, 1X/DAY
     Route: 048
  10. INSULIN HUMAN [Concomitant]
     Indication: DIABETES MELLITUS
     Dosage: 32 IU, 1X/DAY
     Route: 058
  11. MAPROTILINE [Concomitant]
     Indication: INSOMNIA
     Dosage: 25 MG, 1X/DAY
     Route: 048
  12. MEILAX [Concomitant]
     Indication: INSOMNIA
     Dosage: 1 MG, 2X/DAY
  13. LYRICA [Suspect]
     Indication: INTERCOSTAL NEURALGIA
     Dosage: 75 MG, 2X/DAY
     Route: 048
     Dates: start: 20111110, end: 20111111
  14. SILECE [Concomitant]
     Indication: INSOMNIA
     Dosage: 1 MG, 1X/DAY
     Route: 048
  15. SEFTAC [Concomitant]
     Dosage: 50 MG, 2X/DAY
     Route: 048
  16. LIMAPROST [Concomitant]
     Indication: LUMBAR SPINAL STENOSIS
     Dosage: 5 UG, 2X/DAY
     Route: 048
  17. KENTAN [Concomitant]
     Indication: LUMBAR SPINAL STENOSIS
     Dosage: 60 MG, AS NEEDED
     Route: 048
  18. ACETAMINOPHEN [Concomitant]
     Indication: PYREXIA
     Dosage: 400 MG, AS NEEDED
     Route: 048
  19. GLUCOBAY [Concomitant]
     Indication: DIABETES MELLITUS
     Dosage: 50 MG, 3X/DAY
     Route: 048
  20. OMEPRAZOLE [Concomitant]
     Indication: GASTROOESOPHAGEAL REFLUX DISEASE
     Dosage: 20 MG, 1X/DAY
     Route: 048
     Dates: start: 20110915
  21. SUMILU [Concomitant]
     Indication: LUMBAR SPINAL STENOSIS
     Dosage: UNK
     Route: 061
  22. TOFRANIL [Concomitant]
     Indication: INSOMNIA
     Dosage: 50 MG, 1X/DAY
     Route: 048

REACTIONS (1)
  - DEPRESSED LEVEL OF CONSCIOUSNESS [None]
